FAERS Safety Report 4720585-5 (Version None)
Quarter: 2005Q3

REPORT INFORMATION
  Report Type: 
  Country: None (occurrence: None)
  Receive Date: 20050721
  Receipt Date: 20050718
  Transmission Date: 20060218
  Serious: Yes (Life-Threatening)
  Sender: FDA-Public Use
  Company Number: PHRM2005FR02100

PATIENT
  Age: 66 Year
  Sex: Female
  Weight: 85 kg

DRUGS (6)
  1. LESCOL [Suspect]
     Route: 048
     Dates: end: 20050515
  2. METFORMIN HCL [Suspect]
     Route: 048
     Dates: end: 20050515
  3. COAPROVEL [Suspect]
     Dosage: 1 DF, QD
     Route: 048
     Dates: start: 20050420, end: 20050515
  4. COTAREG [Concomitant]
     Route: 048
     Dates: start: 20040801, end: 20050401
  5. COTAREG [Concomitant]
     Route: 048
     Dates: start: 20040801, end: 20050401
  6. APROVEL [Suspect]
     Dosage: 150 MG, QD
     Route: 048
     Dates: end: 20050515

REACTIONS (8)
  - ACUTE RESPIRATORY FAILURE [None]
  - AGITATION [None]
  - CHOLELITHIASIS [None]
  - CONFUSIONAL STATE [None]
  - PANCREATITIS ACUTE [None]
  - PYREXIA [None]
  - RENAL FAILURE [None]
  - RESPIRATORY FAILURE [None]
